FAERS Safety Report 6546030-5 (Version None)
Quarter: 2010Q1

REPORT INFORMATION
  Report Type: 
  Country: None (occurrence: None)
  Receive Date: 20100121
  Receipt Date: 20100121
  Transmission Date: 20100710
  Serious: Yes (Death, Other)
  Sender: FDA-Public Use
  Company Number: None

PATIENT
  Age: 49 Year
  Sex: Male
  Weight: 83.9154 kg

DRUGS (2)
  1. AMBIEN [Suspect]
     Indication: DEPRESSION
     Dosage: 10MG 10TABS, 5MG 20TABS AT BED TIME PO
     Route: 048
     Dates: start: 20090914, end: 20090920
  2. AMBIEN [Suspect]
     Indication: INSOMNIA
     Dosage: 10MG 10TABS, 5MG 20TABS AT BED TIME PO
     Route: 048
     Dates: start: 20090914, end: 20090920

REACTIONS (3)
  - ALCOHOL USE [None]
  - COMPLETED SUICIDE [None]
  - DRUG ABUSER [None]
